FAERS Safety Report 7038243-3 (Version None)
Quarter: 2010Q4

REPORT INFORMATION
  Report Type: 
  Country: None (occurrence: None)
  Receive Date: 20101011
  Receipt Date: 20100112
  Transmission Date: 20110411
  Serious: No
  Sender: FDA-Public Use
  Company Number: US-PFIZER INC-2010005867

PATIENT
  Sex: Female
  Weight: 54 kg

DRUGS (14)
  1. GABAPENTIN [Suspect]
     Indication: PRURITUS GENERALISED
     Dosage: 300 MG, UNK
     Route: 048
     Dates: start: 20091221
  2. NEBIVOLOL [Concomitant]
     Indication: HYPERTENSION
     Dosage: 5 MG/DAY
     Route: 048
     Dates: start: 20090101
  3. VALSARTAN [Concomitant]
     Indication: HYPERTENSION
     Dosage: 160 MG/DAY
     Route: 048
     Dates: start: 20030101
  4. PRAVACHOL [Concomitant]
     Indication: LIVER DISORDER
     Dosage: 20 MG/DAY
     Route: 048
     Dates: start: 19900101
  5. PROTONIX [Concomitant]
     Indication: GASTROOESOPHAGEAL REFLUX DISEASE
     Dosage: 40 MG/DAY
     Route: 048
     Dates: start: 19900101
  6. ADVAIR DISKUS 100/50 [Concomitant]
     Indication: MYCOBACTERIUM AVIUM COMPLEX INFECTION
     Dosage: [FLUTICASONE PROPIONATE 100 MCG]/[SALMETEROL 50 MCG]
     Route: 045
     Dates: start: 20000101
  7. ADVAIR DISKUS 100/50 [Concomitant]
     Indication: BRONCHIECTASIS
  8. BIOTIN [Concomitant]
     Indication: ALOPECIA
     Dosage: 2500 MG, 2X/DAY
     Route: 048
     Dates: start: 20050101
  9. SYNTHROID [Concomitant]
     Indication: THYROID DISORDER
     Dosage: 50 UG/DAY
     Route: 048
     Dates: start: 20090101
  10. ATARAX [Concomitant]
     Indication: PRURITUS
     Dosage: 25 MG/DAY
     Route: 048
     Dates: start: 20040101
  11. ATARAX [Concomitant]
  12. LEXAPRO [Concomitant]
     Indication: DEPRESSION
     Dosage: 5 MG/DAY
     Route: 048
     Dates: start: 20090101
  13. DICYCLOMINE HYDROCHLORIDE [Concomitant]
     Indication: ABDOMINAL DISCOMFORT
     Dosage: 10 MG, AS NEEDED
     Route: 048
  14. DICYCLOMINE HYDROCHLORIDE [Concomitant]
     Dosage: 10 MG, AS NEEDED
     Route: 048

REACTIONS (2)
  - DIARRHOEA [None]
  - WEIGHT INCREASED [None]
